FAERS Safety Report 4848142-0 (Version None)
Quarter: 2005Q4

REPORT INFORMATION
  Report Type: 
  Country: None (occurrence: None)
  Receive Date: 20051206
  Receipt Date: 20051206
  Transmission Date: 20060501
  Serious: Yes (Other)
  Sender: FDA-Public Use
  Company Number: None

PATIENT
  Age: 38 Year
  Sex: Male
  Weight: 95.2554 kg

DRUGS (2)
  1. STRATTERA [Suspect]
     Dosage: 80MG
     Dates: start: 20050620, end: 20050718
  2. ZOLOFT [Concomitant]

REACTIONS (1)
  - SCROTAL PAIN [None]
